FAERS Safety Report 9799560 (Version 1)
Quarter: 2014Q1

REPORT INFORMATION
  Report Type: Spontaneous
  Country: US (occurrence: None)
  Receive Date: 20140103
  Receipt Date: 20140103
  Transmission Date: 20141002
  Serious: No
  Sender: FDA-Public Use
  Company Number: None

PATIENT
  Age: 32 Year
  Sex: Female

DRUGS (1)
  1. HUMIRA 40MG ABB VIE [Suspect]
     Route: 058
     Dates: start: 20100705, end: 20131203

REACTIONS (1)
  - Exposure during pregnancy [None]
